FAERS Safety Report 4316613-1 (Version None)
Quarter: 2004Q1

REPORT INFORMATION
  Report Type: 
  Country: None (occurrence: None)
  Receive Date: 20040311
  Receipt Date: 20040227
  Transmission Date: 20041129
  Serious: Yes (Hospitalization)
  Sender: FDA-Public Use
  Company Number: 04P-056-0251876-00

PATIENT
  Sex: Female

DRUGS (4)
  1. TARKA [Suspect]
     Indication: HYPERTENSION
     Dosage: PER ORAL
     Route: 048
  2. TITANIUM DIOXIDE [Suspect]
     Indication: DRUG USE FOR UNKNOWN INDICATION
     Dosage: UNK
     Route: 065
  3. IRON OXIDE [Suspect]
     Indication: DRUG USE FOR UNKNOWN INDICATION
     Dosage: UNK
     Route: 065
  4. RILMENIDINE [Concomitant]

REACTIONS (3)
  - DRUG HYPERSENSITIVITY [None]
  - OEDEMA [None]
  - TOXIC SKIN ERUPTION [None]
